FAERS Safety Report 23735458 (Version 1)
Quarter: 2024Q2

REPORT INFORMATION
  Report Type: Spontaneous
  Country: ID (occurrence: ID)
  Receive Date: 20240412
  Receipt Date: 20240412
  Transmission Date: 20240716
  Serious: Yes (Life-Threatening, Other)
  Sender: FDA-Public Use
  Company Number: ID-862174955-ML2024-02338

PATIENT
  Age: 67 Year
  Sex: Female
  Weight: 40 kg

DRUGS (6)
  1. MIDAZOLAM [Suspect]
     Active Substance: MIDAZOLAM
     Indication: Induction of anaesthesia
     Route: 042
  2. ATRACURIUM [Suspect]
     Active Substance: ATRACURIUM
     Indication: Induction of anaesthesia
     Route: 042
  3. FENTANYL [Suspect]
     Active Substance: FENTANYL\FENTANYL CITRATE
     Indication: Induction of anaesthesia
     Route: 042
  4. DESFLURANE [Concomitant]
     Active Substance: DESFLURANE
     Indication: Maintenance of anaesthesia
     Dosage: DESFLURANE (MAC 6%)
  5. Tofodex [Concomitant]
     Indication: Induction of anaesthesia
     Route: 042
  6. THIOPENTAL [Concomitant]
     Active Substance: THIOPENTAL
     Indication: Maintenance of anaesthesia
     Route: 042

REACTIONS (1)
  - Blood pressure decreased [Recovered/Resolved]
